FAERS Safety Report 8029936-X (Version None)
Quarter: 2011Q4

REPORT INFORMATION
  Report Type: 
  Country: None (occurrence: None)
  Receive Date: 20111130
  Receipt Date: 20110816
  Transmission Date: 20120403
  Serious: Yes (Other)
  Sender: FDA-Public Use
  Company Number: US201106000963

PATIENT
  Age: 78 Year
  Sex: Female

DRUGS (6)
  1. SIMVASTATIN [Concomitant]
  2. BYETTA [Suspect]
     Indication: TYPE 2 DIABETES MELLITUS
     Dosage: 5 UG, BID, SUBCUTANEOUS ; 10 UG, BID, SUBCUTANEOUS
     Route: 058
     Dates: start: 20070302, end: 20110501
  3. CLONIDINE [Concomitant]
  4. AMLODIPINE (AMLOPIDINE) [Concomitant]
  5. LEXAPRO [Concomitant]
  6. ACTOSPLUS MET (METFORMIN HYDROCHLORIDE, PIOGLITAZONE HYDROCHLORIDE) [Concomitant]

REACTIONS (3)
  - WEIGHT DECREASED [None]
  - DECREASED APPETITE [None]
  - PANCREATITIS [None]
